FAERS Safety Report 9224419 (Version 2)
Quarter: 2013Q2

REPORT INFORMATION
  Report Type: Spontaneous
  Country: TR (occurrence: TR)
  Receive Date: 20130411
  Receipt Date: 20130507
  Transmission Date: 20140414
  Serious: Yes (Other)
  Sender: FDA-Public Use
  Company Number: TR-AMGEN-TURSP2013024824

PATIENT
  Age: 6 Year
  Sex: Male
  Weight: 16.5 kg

DRUGS (2)
  1. ENBREL [Suspect]
     Indication: JUVENILE IDIOPATHIC ARTHRITIS
     Dosage: UNK UNK, QD
     Route: 058
     Dates: start: 20120101
  2. METHOTREXATE [Concomitant]
     Dosage: UNK

REACTIONS (2)
  - Polyneuropathy [Recovered/Resolved with Sequelae]
  - Muscle atrophy [Recovered/Resolved with Sequelae]
